FAERS Safety Report 7656810-0 (Version None)
Quarter: 2011Q3

REPORT INFORMATION
  Report Type: 
  Country: None (occurrence: None)
  Receive Date: 20110804
  Receipt Date: 20110722
  Transmission Date: 20111222
  Serious: No
  Sender: FDA-Public Use
  Company Number: US-B.I. PHARMACEUTICALS,INC./RIDGEFIELD-2011-BP-16615BP

PATIENT
  Sex: Male

DRUGS (15)
  1. PEPCID [Concomitant]
     Indication: DYSPEPSIA
  2. ASPIRIN [Concomitant]
     Indication: HYPERTENSION
  3. VIT D [Concomitant]
     Indication: MACULAR DEGENERATION
  4. ZINC [Concomitant]
     Indication: MACULAR DEGENERATION
  5. FLOMAX [Suspect]
     Indication: BENIGN PROSTATIC HYPERPLASIA
     Dosage: 0.4 MG
     Route: 048
     Dates: start: 19980101
  6. VIT C [Concomitant]
     Indication: MACULAR DEGENERATION
  7. VIT E [Concomitant]
     Indication: MACULAR DEGENERATION
  8. GABAPENTIN [Concomitant]
     Indication: NEUROPATHY PERIPHERAL
     Dosage: 600 MG
  9. VITAMIN TAB [Concomitant]
  10. FLUNISOLIDE [Concomitant]
     Indication: NASAL CONGESTION
  11. ZOLPIDEM [Concomitant]
  12. GLYBURIDE [Suspect]
     Indication: DIABETES MELLITUS
  13. METOPROLOL TARTRATE [Concomitant]
     Indication: HYPERTENSION
     Dosage: 25 MG
  14. LUTEIN [Concomitant]
     Indication: MACULAR DEGENERATION
  15. BETA CAROTENE [Concomitant]
     Indication: MACULAR DEGENERATION

REACTIONS (3)
  - POLLAKIURIA [None]
  - DYSURIA [None]
  - DRUG INEFFECTIVE [None]
